FAERS Safety Report 10036471 (Version 2)
Quarter: 2014Q1

REPORT INFORMATION
  Report Type: Report from Study
  Country: IT (occurrence: IT)
  Receive Date: 20140326
  Receipt Date: 20140326
  Transmission Date: 20141002
  Serious: Yes (Life-Threatening, Hospitalization)
  Sender: FDA-Public Use
  Company Number: IT-ROCHE-1078220

PATIENT
  Age: 66 Year
  Sex: Female
  Weight: 43 kg

DRUGS (29)
  1. OBINUTUZUMAB [Suspect]
     Indication: DIFFUSE LARGE B-CELL LYMPHOMA
     Dosage: DOSE CONCENTRATION 4 MG/ML, LAST DOSE PRIOR TO SAE 24/MAY/2012, VOLUME OF LAST DOSE TAKEN, 250 ML
     Route: 042
     Dates: start: 20120307, end: 20120613
  2. CYCLOPHOSPHAMIDE [Suspect]
     Indication: DIFFUSE LARGE B-CELL LYMPHOMA
     Dosage: LAST DOSE PRIOR TO SAE 24/MAY/2012, LAST DOSE TAKEN, 530 MG
     Route: 042
     Dates: start: 20120308, end: 20120613
  3. VINCRISTINE [Suspect]
     Indication: DIFFUSE LARGE B-CELL LYMPHOMA
     Dosage: LAST DOSE PRIOR TO SAE 24/MAY/2012, LAST DOSE TAKEN 2 MG
     Route: 042
     Dates: start: 20120308, end: 20120613
  4. PREDNISONE [Suspect]
     Indication: DIFFUSE LARGE B-CELL LYMPHOMA
     Dosage: LAST DOSE PRIOR TO SAE 28/MAY/2012, LAST DOSE TAKEN, 100 MG
     Route: 048
     Dates: start: 20120307, end: 20120613
  5. DOXORUBICIN [Suspect]
     Indication: DIFFUSE LARGE B-CELL LYMPHOMA
     Dosage: LAST DOSE PRIOR TO SAE 24/MAY/2012, LAST DOSE TAKEN: 36 MG
     Route: 042
     Dates: start: 20120308, end: 20120613
  6. CIPRALEX [Concomitant]
  7. ACICLOVIR [Concomitant]
     Route: 065
     Dates: start: 20120403, end: 20120612
  8. TACHIPIRINA [Concomitant]
     Indication: HEADACHE
     Route: 065
     Dates: start: 20120403
  9. KCL-RETARD ZYMA [Concomitant]
     Route: 065
     Dates: start: 20120410, end: 20120612
  10. X-PREP [Concomitant]
     Indication: CONSTIPATION
     Route: 065
     Dates: start: 20120410, end: 20120516
  11. PANTORC [Concomitant]
     Indication: PROPHYLAXIS
     Route: 065
     Dates: start: 20120508
  12. DIFLUCAN [Concomitant]
     Route: 065
     Dates: start: 20120510, end: 20120517
  13. DIFLUCAN [Concomitant]
     Route: 065
     Dates: start: 20120525, end: 20120612
  14. LEVOFLOXACIN [Concomitant]
     Route: 065
     Dates: start: 20120513, end: 20120517
  15. ACETYLSALICYLIC ACID [Concomitant]
     Route: 065
     Dates: start: 20120510, end: 20120613
  16. SULFAMETHOXAZOLE/TRIMETHOPRIM [Concomitant]
     Route: 065
     Dates: start: 20120510, end: 20120612
  17. ENSURE PLUS [Concomitant]
     Route: 065
     Dates: start: 20120516
  18. DEURSIL [Concomitant]
     Route: 065
     Dates: start: 20120516, end: 20120523
  19. DEURSIL [Concomitant]
     Route: 065
     Dates: start: 20120530, end: 20120612
  20. AMOXICILLIN/CLAVULANIC ACID [Concomitant]
     Route: 065
     Dates: start: 20120516, end: 20120522
  21. ONDANSETRON [Concomitant]
     Route: 065
     Dates: start: 20120524, end: 20120611
  22. SOLU-CORTEF [Concomitant]
     Route: 065
     Dates: start: 20120524, end: 20120524
  23. TRIMETON (CHLORPHENIRAMINE MALEATE) [Concomitant]
     Route: 065
     Dates: start: 20120524, end: 20120524
  24. TACHIPIRINA [Concomitant]
     Indication: PYREXIA
     Route: 065
     Dates: start: 20120524, end: 20120524
  25. NAVOBAN [Concomitant]
     Indication: NAUSEA
     Route: 065
     Dates: start: 20120524, end: 20120524
  26. ZITROMAX [Concomitant]
     Indication: PYREXIA
     Route: 065
     Dates: start: 20120605, end: 20120612
  27. DELTACORTENE [Concomitant]
     Route: 065
     Dates: start: 20120529, end: 20120531
  28. BENERVA [Concomitant]
     Route: 065
     Dates: start: 20120612, end: 20120612
  29. SOLDESAM [Concomitant]
     Indication: LYMPHOMA
     Route: 065
     Dates: start: 20120613

REACTIONS (2)
  - Meningitis [Recovered/Resolved]
  - Meningitis [Not Recovered/Not Resolved]
